FAERS Safety Report 13062071 (Version 1)
Quarter: 2016Q4

REPORT INFORMATION
  Report Type: Spontaneous
  Country: US (occurrence: US)
  Receive Date: 20161226
  Receipt Date: 20161226
  Transmission Date: 20170207
  Serious: No
  Sender: FDA-Public Use
  Company Number: US-009507513-1612USA010640

PATIENT
  Age: 16 Year
  Sex: Female
  Weight: 44.44 kg

DRUGS (1)
  1. NEXPLANON [Suspect]
     Active Substance: ETONOGESTREL
     Indication: CONTRACEPTION
     Dosage: EVERY 3 YEARS
     Route: 059
     Dates: start: 20151027

REACTIONS (4)
  - Weight decreased [Unknown]
  - Alopecia [Unknown]
  - Menorrhagia [Unknown]
  - Depression [Unknown]

NARRATIVE: CASE EVENT DATE: 201604
